FAERS Safety Report 13357679 (Version 1)
Quarter: 2017Q1

REPORT INFORMATION
  Report Type: Spontaneous
  Country: DE (occurrence: DE)
  Receive Date: 20170322
  Receipt Date: 20170322
  Transmission Date: 20170429
  Serious: Yes (Other)
  Sender: FDA-Public Use
  Company Number: DE-SUN PHARMACEUTICAL INDUSTRIES LTD-2017RR-136206

PATIENT
  Age: 1 Day
  Sex: Female
  Weight: 2.29 kg

DRUGS (4)
  1. SERTRALINE [Suspect]
     Active Substance: SERTRALINE HYDROCHLORIDE
     Indication: DEPRESSION
     Dosage: 0-38 GESTATIONAL WEEK, 75MG/D IN THE BEGINING, AFTER GESTATIONAL WEEK 4 REDUCTION TO 50 MG/D
     Route: 064
     Dates: start: 20160125, end: 20161017
  2. LAMOTRIGIN [Concomitant]
     Active Substance: LAMOTRIGINE
     Indication: DEPRESSION
     Dosage: 125 MG, DAILY IN THE BEGINNING AND AFTER GESTATIONAL WEEK 4 REDUCTION OF DOSAGE,0-1 GESTATIONAL WEEK
     Route: 064
  3. FOLIO FORTE (JODFREI) [Concomitant]
     Indication: PROPHYLAXIS OF NEURAL TUBE DEFECT
     Dosage: 0.8 MG/D, DAILY,0-4 GESTATIONAL WEEK
     Route: 064
     Dates: start: 20160123, end: 20160222
  4. L-THYROXIN [Concomitant]
     Active Substance: LEVOTHYROXINE SODIUM
     Indication: HYPOTHYROIDISM
     Dosage: 50 ?G/D, DAILY, 0-38 GESTATIONAL WEEK
     Route: 064
     Dates: start: 20160125, end: 20161017

REACTIONS (1)
  - Small for dates baby [Recovered/Resolved]

NARRATIVE: CASE EVENT DATE: 20161017
